FAERS Safety Report 6415157-0 (Version None)
Quarter: 2009Q4

REPORT INFORMATION
  Report Type: 
  Country: None (occurrence: None)
  Receive Date: 20091027
  Receipt Date: 20091017
  Transmission Date: 20100525
  Serious: Yes (Other)
  Sender: FDA-Public Use
  Company Number: US-BIOGENIDEC-2009BI026692

PATIENT
  Sex: Female

DRUGS (1)
  1. AVONEX [Suspect]
     Indication: MULTIPLE SCLEROSIS
     Route: 030
     Dates: start: 20090416

REACTIONS (5)
  - ADVERSE DRUG REACTION [None]
  - INFLAMMATION [None]
  - INSOMNIA [None]
  - INTRACRANIAL ANEURYSM [None]
  - RASH [None]
